FAERS Safety Report 10921149 (Version 1)
Quarter: 2015Q1

REPORT INFORMATION
  Report Type: Spontaneous
  Country: US (occurrence: None)
  Receive Date: 20150313
  Receipt Date: 20150313
  Transmission Date: 20150721
  Serious: Yes (Disabling)
  Sender: FDA-Public Use
  Company Number: None

PATIENT
  Age: 48 Year
  Sex: Female
  Weight: 84.37 kg

DRUGS (12)
  1. LEVAQUIN [Suspect]
     Active Substance: LEVOFLOXACIN
     Indication: PNEUMONIA
     Dosage: 1 PILL QD  ORAL
     Route: 048
     Dates: start: 20150217, end: 20150304
  2. ZINC [Concomitant]
     Active Substance: ZINC\ZINC CHLORIDE
  3. METOPROLOL SUCCINATE. [Concomitant]
     Active Substance: METOPROLOL SUCCINATE
  4. DYMISTA [Concomitant]
     Active Substance: AZELASTINE HYDROCHLORIDE\FLUTICASONE PROPIONATE
  5. IBUPROFEN. [Concomitant]
     Active Substance: IBUPROFEN
  6. CITALOPRAM [Concomitant]
     Active Substance: CITALOPRAM HYDROBROMIDE
  7. OCT VITAMIN D [Concomitant]
  8. LOSARTAN [Concomitant]
     Active Substance: LOSARTAN
  9. METFORMIN [Concomitant]
     Active Substance: METFORMIN HYDROCHLORIDE
  10. OMEPRAZOLE. [Concomitant]
     Active Substance: OMEPRAZOLE
  11. TUSSIONEX PENNKINETIC [Concomitant]
     Active Substance: CHLORPHENIRAMINE\HYDROCODONE
  12. LORATIDINE [Concomitant]
     Active Substance: LORATADINE

REACTIONS (4)
  - Myalgia [None]
  - Disability [None]
  - Arthralgia [None]
  - Muscular weakness [None]

NARRATIVE: CASE EVENT DATE: 20150305
